FAERS Safety Report 11541841 (Version 1)
Quarter: 2015Q3

REPORT INFORMATION
  Report Type: Spontaneous
  Country: US (occurrence: US)
  Receive Date: 20150923
  Receipt Date: 20150923
  Transmission Date: 20151125
  Serious: No
  Sender: FDA-Public Use
  Company Number: US-TARO-2015TAR00002

PATIENT
  Age: 1 Year
  Sex: Female
  Weight: 9.7 kg

DRUGS (2)
  1. UNSPECIFIED ^SHOT^ [Concomitant]
     Dosage: UNK, ONCE
     Dates: start: 20141231, end: 20141231
  2. LORATADINE SYRUP (LORATADINE ORAL SOLUTION USP) 5MG/5ML [Suspect]
     Active Substance: LORATADINE
     Indication: CROUP INFECTIOUS
     Dosage: 0.5 TSP, 1X/DAY
     Route: 048
     Dates: start: 20141231

REACTIONS (1)
  - Erythema [Recovered/Resolved]

NARRATIVE: CASE EVENT DATE: 20141231
